FAERS Safety Report 20749187 (Version 2)
Quarter: 2022Q4

REPORT INFORMATION
  Report Type: Spontaneous
  Country: CH (occurrence: CH)
  Receive Date: 20220426
  Receipt Date: 20221110
  Transmission Date: 20230113
  Serious: Yes (Other)
  Sender: FDA-Public Use
  Company Number: CH-BRISTOL-MYERS SQUIBB COMPANY-2022-026569

PATIENT
  Age: 74 Year
  Sex: Male

DRUGS (2)
  1. IPILIMUMAB [Suspect]
     Active Substance: IPILIMUMAB
     Indication: Pleural mesothelioma malignant
     Route: 065
     Dates: start: 20210720, end: 20211206
  2. NIVOLUMAB [Suspect]
     Active Substance: NIVOLUMAB
     Indication: Pleural mesothelioma malignant
     Route: 065
     Dates: start: 20210720, end: 202112

REACTIONS (3)
  - Uveitis [Recovering/Resolving]
  - Macular oedema [Unknown]
  - Aortitis [Unknown]

NARRATIVE: CASE EVENT DATE: 20211201
